FAERS Safety Report 4668477-4 (Version None)
Quarter: 2005Q2

REPORT INFORMATION
  Report Type: 
  Country: None (occurrence: None)
  Receive Date: 20050518
  Receipt Date: 20050425
  Transmission Date: 20051028
  Serious: No
  Sender: FDA-Public Use
  Company Number: B0359806A

PATIENT
  Sex: Male

DRUGS (4)
  1. PAXIL [Suspect]
     Indication: ANXIETY
     Dosage: 20 MG/ PER DAY
     Dates: start: 20001020, end: 20041201
  2. CITALOPRAM [Concomitant]
  3. DIAZEPAM [Concomitant]
  4. OLANZAPINE [Concomitant]

REACTIONS (19)
  - ABNORMAL SENSATION IN EYE [None]
  - AGGRESSION [None]
  - BLOOD GLUCOSE DECREASED [None]
  - CONDITION AGGRAVATED [None]
  - CONVULSION [None]
  - DEREALISATION [None]
  - DIZZINESS [None]
  - DREAMY STATE [None]
  - DRUG WITHDRAWAL SYNDROME [None]
  - FATIGUE [None]
  - FEELING ABNORMAL [None]
  - FLASHBACK [None]
  - MENTAL DISORDER [None]
  - PANIC ATTACK [None]
  - PHOTOSENSITIVITY REACTION [None]
  - SOMNOLENCE [None]
  - SUICIDAL IDEATION [None]
  - TREATMENT NONCOMPLIANCE [None]
  - VIRAL INFECTION [None]
